FAERS Safety Report 14831688 (Version 1)
Quarter: 2018Q2

REPORT INFORMATION
  Report Type: Spontaneous
  Country: US (occurrence: US)
  Receive Date: 20180501
  Receipt Date: 20180501
  Transmission Date: 20180711
  Serious: Yes (Other)
  Sender: FDA-Public Use
  Company Number: US-ZYDUS-019898

PATIENT
  Age: 40 Year
  Sex: Female

DRUGS (1)
  1. PHENTERMINE. [Suspect]
     Active Substance: PHENTERMINE
     Indication: PRODUCT USED FOR UNKNOWN INDICATION
     Route: 065

REACTIONS (8)
  - Phospholipidosis [Unknown]
  - Swelling [Unknown]
  - Light chain analysis increased [Unknown]
  - Fatigue [Unknown]
  - Complement factor C3 decreased [Unknown]
  - Proteinuria [Unknown]
  - Amyloidosis [Unknown]
  - Blood immunoglobulin A decreased [Unknown]
